FAERS Safety Report 5567266-6 (Version None)
Quarter: 2007Q4

REPORT INFORMATION
  Report Type: 
  Country: None (occurrence: None)
  Receive Date: 20071219
  Receipt Date: 20071206
  Transmission Date: 20080405
  Serious: Yes (Hospitalization)
  Sender: FDA-Public Use
  Company Number: JP-RANBAXY-2007RR-07521

PATIENT

DRUGS (7)
  1. SIMVASTATIN 5MG TABLETS [Suspect]
     Indication: HYPERLIPIDAEMIA
     Dosage: 5 MG, QD
  2. PREDNISOLONE [Concomitant]
     Dosage: 30 MG, UNK
  3. PREDNISOLONE [Concomitant]
     Dosage: 20 MG, QD
  4. LOXOPROFEN SODIUM [Concomitant]
     Indication: MUSCULOSKELETAL PAIN
  5. BETAMETHASONE [Concomitant]
     Indication: MUSCULOSKELETAL PAIN
  6. CIMETIDINE [Concomitant]
     Indication: MUSCULOSKELETAL PAIN
  7. SALAZOSULFAPIRIDINE [Concomitant]

REACTIONS (1)
  - EOSINOPHILIC PNEUMONIA [None]
